FAERS Safety Report 6987198-6 (Version None)
Quarter: 2010Q3

REPORT INFORMATION
  Report Type: 
  Country: None (occurrence: None)
  Receive Date: 20100916
  Receipt Date: 20100909
  Transmission Date: 20110219
  Serious: Yes (Hospitalization, Other)
  Sender: FDA-Public Use
  Company Number: RU-BAYER-201033631GPV

PATIENT
  Age: 64 Year
  Sex: Male
  Weight: 72 kg

DRUGS (5)
  1. SORAFENIB [Suspect]
     Indication: HEPATIC NEOPLASM MALIGNANT
     Route: 048
     Dates: start: 20100629, end: 20100706
  2. ERLOTINIB OR PLACEBO [Suspect]
     Indication: HEPATIC NEOPLASM MALIGNANT
     Route: 048
     Dates: start: 20100629, end: 20100706
  3. BETALOC [Concomitant]
     Indication: HYPERTENSION
     Route: 048
     Dates: start: 20100701
  4. PREDUCTAL [Concomitant]
     Indication: HYPERTENSION
     Route: 048
     Dates: start: 20100701
  5. MONOPRIL [Concomitant]
     Indication: HYPERTENSION
     Route: 048
     Dates: start: 20100701

REACTIONS (3)
  - DERMATITIS [None]
  - RASH [None]
  - VASCULITIS [None]
